FAERS Safety Report 10798561 (Version 1)
Quarter: 2015Q1

REPORT INFORMATION
  Report Type: Spontaneous
  Country: CH (occurrence: CH)
  Receive Date: 20150216
  Receipt Date: 20150216
  Transmission Date: 20150721
  Serious: Yes (Hospitalization)
  Sender: FDA-Public Use
  Company Number: CH-GLAXOSMITHKLINE-CH2015018195

PATIENT

DRUGS (15)
  1. ZINACEF [Suspect]
     Active Substance: CEFUROXIME SODIUM
     Route: 041
     Dates: start: 20140922, end: 20140923
  2. DISOPRIVAN [Concomitant]
     Active Substance: PROPOFOL
     Indication: GENERAL ANAESTHESIA
     Route: 042
     Dates: start: 20140922, end: 20140922
  3. EPINEPHRINE + MEPIVACAINE HYDROCHLORIDE [Concomitant]
     Indication: OTOPLASTY
     Route: 050
     Dates: start: 20140922, end: 20140922
  4. ALGIFOR [Concomitant]
     Active Substance: IBUPROFEN
     Indication: OTOPLASTY
     Route: 048
     Dates: start: 20140922, end: 20140923
  5. EMLA [Concomitant]
     Active Substance: LIDOCAINE\PRILOCAINE
     Indication: LOCAL ANAESTHESIA
     Route: 061
     Dates: start: 20140922, end: 20140922
  6. ESMERON [Concomitant]
     Active Substance: ROCURONIUM BROMIDE
     Indication: GENERAL ANAESTHESIA
     Route: 040
     Dates: start: 20140922, end: 20140922
  7. FENTANYL. [Concomitant]
     Active Substance: FENTANYL
     Indication: GENERAL ANAESTHESIA
     Route: 042
     Dates: start: 20140922, end: 20140922
  8. VOLTAREN [Concomitant]
     Active Substance: DICLOFENAC SODIUM
     Indication: GENERAL ANAESTHESIA
     Route: 042
     Dates: start: 20140922, end: 20140922
  9. PARACETAMOL [Concomitant]
     Active Substance: ACETAMINOPHEN
     Indication: OTOPLASTY
     Dates: start: 20140922, end: 20140922
  10. AUGMENTIN DUO [Suspect]
     Active Substance: AMOXICILLIN\CLAVULANATE POTASSIUM
     Indication: OTOPLASTY
     Route: 048
     Dates: start: 20140923, end: 20141001
  11. DORMICUM [Concomitant]
     Active Substance: MIDAZOLAM\MIDAZOLAM HYDROCHLORIDE
     Indication: ANAESTHETIC PREMEDICATION
     Route: 048
     Dates: start: 20140922, end: 20140922
  12. SEVOFLURANE. [Concomitant]
     Active Substance: SEVOFLURANE
     Indication: GENERAL ANAESTHESIA
     Route: 055
     Dates: start: 20140922, end: 20140922
  13. ZOFRAN [Concomitant]
     Active Substance: ONDANSETRON HYDROCHLORIDE
     Indication: PROPHYLAXIS OF NAUSEA AND VOMITING
     Route: 042
     Dates: start: 20140922, end: 20140922
  14. LIDOCAIN [Concomitant]
     Indication: GENERAL ANAESTHESIA
     Route: 042
     Dates: start: 20140922, end: 20140922
  15. MEPHAMESON [Concomitant]
     Active Substance: DEXAMETHASONE
     Indication: OTOPLASTY
     Route: 042
     Dates: start: 20140922, end: 20140922

REACTIONS (6)
  - Lymphadenopathy [Recovered/Resolved]
  - Skin test positive [Recovered/Resolved]
  - Drug hypersensitivity [Not Recovered/Not Resolved]
  - Erythema multiforme [Recovered/Resolved]
  - Face oedema [Recovered/Resolved]
  - Pyrexia [Recovered/Resolved]

NARRATIVE: CASE EVENT DATE: 20141001
